FAERS Safety Report 9264848 (Version 1)
Quarter: 2013Q2

REPORT INFORMATION
  Report Type: Spontaneous
  Country: VE (occurrence: VE)
  Receive Date: 20130501
  Receipt Date: 20130501
  Transmission Date: 20140414
  Serious: Yes (Hospitalization)
  Sender: FDA-Public Use
  Company Number: PHHY2013VE041023

PATIENT
  Age: 12 Year
  Sex: 0

DRUGS (2)
  1. MYFORTIC [Suspect]
     Indication: NEPHROTIC SYNDROME
     Dosage: UKN, QD
     Route: 048
     Dates: start: 20130412
  2. MYFORTIC [Suspect]
     Dosage: UNK
     Route: 048
     Dates: end: 20130413

REACTIONS (2)
  - Erythema [Recovered/Resolved]
  - Pruritus [Recovered/Resolved]
